FAERS Safety Report 7154716-7 (Version None)
Quarter: 2010Q4

REPORT INFORMATION
  Report Type: 
  Country: None (occurrence: None)
  Receive Date: 20101214
  Receipt Date: 20091106
  Transmission Date: 20110411
  Serious: No
  Sender: FDA-Public Use
  Company Number: US-AMGEN-KDL373467

PATIENT

DRUGS (4)
  1. ENBREL [Suspect]
     Dosage: 50 MG, QWK
     Route: 058
  2. METHOTREXATE [Concomitant]
     Dosage: 2.5 MG, UNK
  3. PREDNISONE [Concomitant]
     Dosage: 5 MG, UNK
  4. FOLIC ACID [Concomitant]
     Dosage: 1 MG, UNK

REACTIONS (2)
  - HEADACHE [None]
  - SINUS HEADACHE [None]
